FAERS Safety Report 9720347 (Version 1)
Quarter: 2013Q4

REPORT INFORMATION
  Report Type: Report from Study
  Country: GB (occurrence: GB)
  Receive Date: 20131129
  Receipt Date: 20131129
  Transmission Date: 20140711
  Serious: Yes (Hospitalization)
  Sender: FDA-Public Use
  Company Number: GB-ROCHE-1310811

PATIENT
  Age: 73 Year
  Sex: Female
  Weight: 85 kg

DRUGS (2)
  1. RITUXIMAB [Suspect]
     Indication: RHEUMATOID ARTHRITIS
     Dosage: LATS DOSE PRIORT O SAE IN JUN/2010
     Route: 065
     Dates: start: 20070913
  2. SULPHASALAZINE [Concomitant]

REACTIONS (1)
  - Lung neoplasm malignant [Recovered/Resolved]
